FAERS Safety Report 12538786 (Version 1)
Quarter: 2016Q3

REPORT INFORMATION
  Report Type: Report from Study
  Country: US (occurrence: US)
  Receive Date: 20160708
  Receipt Date: 20160708
  Transmission Date: 20161109
  Serious: Yes (Other)
  Sender: FDA-Public Use
  Company Number: US-BIOGEN-2014BI088754

PATIENT
  Age: 49 Year
  Sex: Male

DRUGS (3)
  1. ALPROLIX [Suspect]
     Active Substance: EFTRENONACOG ALFA
     Indication: FACTOR IX DEFICIENCY
     Route: 042
  2. CELEBREX [Concomitant]
     Active Substance: CELECOXIB
     Indication: PRODUCT USED FOR UNKNOWN INDICATION
     Route: 065
  3. ALPROLIX [Suspect]
     Active Substance: EFTRENONACOG ALFA
     Route: 065
     Dates: start: 20110601

REACTIONS (4)
  - Renal impairment [Not Recovered/Not Resolved]
  - Renal failure [Unknown]
  - Impaired healing [Not Recovered/Not Resolved]
  - Post procedural haemorrhage [Recovered/Resolved with Sequelae]

NARRATIVE: CASE EVENT DATE: 2014
